FAERS Safety Report 5699989-2 (Version None)
Quarter: 2008Q2

REPORT INFORMATION
  Report Type: 
  Country: None (occurrence: None)
  Receive Date: 20080410
  Receipt Date: 20080403
  Transmission Date: 20081010
  Serious: Yes (Other)
  Sender: FDA-Public Use
  Company Number: PHEH2008US03490

PATIENT
  Sex: Male

DRUGS (1)
  1. ALISKIREN [Suspect]
     Dosage: 300 MG, UNK
     Route: 048

REACTIONS (2)
  - CHOKING SENSATION [None]
  - THROAT IRRITATION [None]
